FAERS Safety Report 23039247 (Version 1)
Quarter: 2023Q4

REPORT INFORMATION
  Report Type: Spontaneous
  Country: US (occurrence: None)
  Receive Date: 20231006
  Receipt Date: 20231006
  Transmission Date: 20240110
  Serious: No
  Sender: FDA-Public Use
  Company Number: None

PATIENT
  Age: 28 Year
  Sex: Female
  Weight: 67.8 kg

DRUGS (2)
  1. AJOVY [Suspect]
     Active Substance: FREMANEZUMAB-VFRM
     Indication: Migraine
     Dosage: OTHER FREQUENCY : MONTHLY;?
     Route: 058
     Dates: start: 20230714, end: 20230921
  2. AJOVY [Concomitant]
     Active Substance: FREMANEZUMAB-VFRM
     Dates: start: 20230714, end: 20230921

REACTIONS (1)
  - Injection site mass [None]

NARRATIVE: CASE EVENT DATE: 20230921
